FAERS Safety Report 24090680 (Version 3)
Quarter: 2024Q3

REPORT INFORMATION
  Report Type: Spontaneous
  Country: SE (occurrence: SE)
  Receive Date: 20240715
  Receipt Date: 20240808
  Transmission Date: 20241017
  Serious: Yes (Other)
  Sender: TAKEDA
  Company Number: SE-TAKEDA-2024TUS070859

PATIENT
  Age: 40 Year
  Sex: Female

DRUGS (2)
  1. LISDEXAMFETAMINE DIMESYLATE [Suspect]
     Active Substance: LISDEXAMFETAMINE DIMESYLATE
     Indication: Attention deficit hyperactivity disorder
     Dosage: UNK
     Route: 065
  2. LISDEXAMFETAMINE DIMESYLATE [Suspect]
     Active Substance: LISDEXAMFETAMINE DIMESYLATE
     Indication: Product used for unknown indication
     Dosage: UNK
     Route: 065

REACTIONS (11)
  - Peripheral swelling [Unknown]
  - Stress [Unknown]
  - Hypoaesthesia oral [Unknown]
  - Haematuria [Unknown]
  - Urinary tract inflammation [Unknown]
  - Product use issue [Unknown]
  - Tachypnoea [Unknown]
  - Hypoaesthesia [Unknown]
  - Fatigue [Unknown]
  - Depressed mood [Unknown]
  - Respiratory distress [Unknown]
